FAERS Safety Report 8454903-1 (Version None)
Quarter: 2012Q2

REPORT INFORMATION
  Report Type: 
  Country: None (occurrence: None)
  Receive Date: 20120615
  Receipt Date: 20120615
  Transmission Date: 20120825
  Serious: No
  Sender: FDA-Public Use
  Company Number: None

PATIENT
  Sex: Female
  Weight: 45.3597 kg

DRUGS (1)
  1. METFORMIN HCL [Suspect]
     Indication: DIABETES MELLITUS
     Dosage: 500 MG 1 A DAY MOUTH
     Route: 048
     Dates: start: 20120518

REACTIONS (8)
  - DYSGEUSIA [None]
  - HOT FLUSH [None]
  - PRODUCT QUALITY ISSUE [None]
  - DYSPEPSIA [None]
  - NERVOUSNESS [None]
  - EYE DISORDER [None]
  - CLUMSINESS [None]
  - CHILLS [None]
